FAERS Safety Report 13667231 (Version 1)
Quarter: 2017Q2

REPORT INFORMATION
  Report Type: Report from Study
  Country: None (occurrence: ES)
  Receive Date: 20170619
  Receipt Date: 20170619
  Transmission Date: 20170830
  Serious: Yes (Hospitalization, Other)
  Sender: FDA-Public Use
  Company Number: ES-ABBVIE-15P-144-1489338-00

PATIENT
  Age: 62 Year
  Sex: Male

DRUGS (1)
  1. DUODOPA [Suspect]
     Active Substance: CARBIDOPA\LEVODOPA
     Indication: PARKINSON^S DISEASE
     Dosage: PURGATION 3 ML; MD: 11 ML; CONT DOSE: 4.3 ML/HOUR; ED: 3.50 ML. PERFUSION PERIOD: 16 HOURS
     Route: 050
     Dates: start: 20140205

REACTIONS (5)
  - On and off phenomenon [Not Recovered/Not Resolved]
  - Inguinal hernia [Recovered/Resolved]
  - Freezing phenomenon [Not Recovered/Not Resolved]
  - Dyskinesia [Unknown]
  - Disease progression [Unknown]

NARRATIVE: CASE EVENT DATE: 201510
